FAERS Safety Report 7318692-6 (Version None)
Quarter: 2011Q1

REPORT INFORMATION
  Report Type: 
  Country: None (occurrence: None)
  Receive Date: 20110228
  Receipt Date: 20110217
  Transmission Date: 20110831
  Serious: Yes (Other)
  Sender: FDA-Public Use
  Company Number: JP-JNJFOC-20110206326

PATIENT
  Sex: Female
  Weight: 46 kg

DRUGS (5)
  1. DOXORUBICIN HCL [Suspect]
     Dosage: CYCLE 2
     Route: 042
  2. DOXORUBICIN HCL [Suspect]
     Dosage: CYCLE 1
     Route: 042
  3. DOXORUBICIN HCL [Suspect]
     Dosage: CYCLE 5
     Route: 042
  4. DOXORUBICIN HCL [Suspect]
     Dosage: CYCLE 4
     Route: 042
  5. DOXORUBICIN HCL [Suspect]
     Indication: OVARIAN CANCER RECURRENT
     Dosage: CYCLE 3
     Route: 042

REACTIONS (1)
  - INTERSTITIAL LUNG DISEASE [None]
